FAERS Safety Report 25404099 (Version 2)
Quarter: 2025Q3

REPORT INFORMATION
  Report Type: Report from Study
  Country: KR (occurrence: KR)
  Receive Date: 20250606
  Receipt Date: 20250708
  Transmission Date: 20251021
  Serious: Yes (Hospitalization, Other)
  Sender: MERCK SHARP & DOHME LLC
  Company Number: KR-009507513-2270943

PATIENT
  Sex: Male

DRUGS (5)
  1. KEYTRUDA [Suspect]
     Active Substance: PEMBROLIZUMAB
     Indication: Gastric cancer
     Dates: start: 20250322
  2. KEYTRUDA [Suspect]
     Active Substance: PEMBROLIZUMAB
     Indication: Gastric cancer
     Dates: start: 20250411
  3. KEYTRUDA [Suspect]
     Active Substance: PEMBROLIZUMAB
     Indication: Gastric cancer
     Dates: start: 20250506
  4. OXALIPLATIN [Suspect]
     Active Substance: OXALIPLATIN
     Indication: Gastric cancer
     Dates: start: 202503
  5. XELODA [Suspect]
     Active Substance: CAPECITABINE
     Indication: Gastric cancer
     Route: 048
     Dates: start: 202503

REACTIONS (26)
  - Hospitalisation [Recovered/Resolved]
  - Hospitalisation [Recovered/Resolved]
  - Incorrect product administration duration [Unknown]
  - Drain placement [Unknown]
  - Hospitalisation [Recovered/Resolved]
  - Drain placement [Unknown]
  - Abscess drainage [Unknown]
  - Red blood cell transfusion [Unknown]
  - Tracheal aspiration procedure [Unknown]
  - Drain placement [Unknown]
  - Red blood cell transfusion [Unknown]
  - Abscess drainage [Unknown]
  - Oxygen therapy [Unknown]
  - Abscess drainage [Unknown]
  - Transfusion [Unknown]
  - Radiotherapy [Unknown]
  - Drain placement [Unknown]
  - Radiotherapy [Unknown]
  - Inappropriate schedule of product administration [Unknown]
  - Inappropriate schedule of product administration [Unknown]
  - Drain placement [Unknown]
  - Drain placement [Unknown]
  - Abscess drainage [Unknown]
  - Drain placement [Recovered/Resolved]
  - Tracheal aspiration procedure [Recovered/Resolved]
  - Drain placement [Unknown]

NARRATIVE: CASE EVENT DATE: 20250101
